FAERS Safety Report 23797255 (Version 1)
Quarter: 2024Q2

REPORT INFORMATION
  Report Type: Spontaneous
  Country: FR (occurrence: FR)
  Receive Date: 20240430
  Receipt Date: 20240430
  Transmission Date: 20240716
  Serious: Yes (Other)
  Sender: FDA-Public Use
  Company Number: FR-CHEPLA-2024005124

PATIENT
  Age: 68 Year
  Sex: Male

DRUGS (1)
  1. OLANZAPINE PAMOATE [Suspect]
     Active Substance: OLANZAPINE PAMOATE
     Dosage: 10 INJECTIONS OF ZYPADHERA 405 MG AT A DOSAGE OF ONE INJECTION PER MONTH.

REACTIONS (11)
  - Neuroleptic malignant syndrome [Unknown]
  - Post-injection delirium sedation syndrome [Unknown]
  - Pneumonia aspiration [Unknown]
  - Malaise [Unknown]
  - Fall [Unknown]
  - Tachycardia [Unknown]
  - Agitation [Unknown]
  - Confusional state [Unknown]
  - Blood pressure increased [Unknown]
  - Vomiting [Unknown]
  - Rash maculo-papular [Unknown]

NARRATIVE: CASE EVENT DATE: 20240411
